FAERS Safety Report 13953806 (Version 1)
Quarter: 2017Q3

REPORT INFORMATION
  Report Type: Spontaneous
  Country: US (occurrence: US)
  Receive Date: 20170911
  Receipt Date: 20170911
  Transmission Date: 20171128
  Serious: No
  Sender: FDA-Public Use
  Company Number: US-PFIZER INC-2017386746

PATIENT
  Age: 41 Year
  Sex: Male
  Weight: 154.2 kg

DRUGS (3)
  1. LYRICA [Suspect]
     Active Substance: PREGABALIN
     Indication: PAIN
     Dosage: 300 MG, TWICE A DAY
     Route: 048
     Dates: start: 20170831
  2. BACTRIM [Concomitant]
     Active Substance: SULFAMETHOXAZOLE\TRIMETHOPRIM
     Indication: LOCALISED INFECTION
     Dosage: UNK
     Dates: start: 20170831
  3. ACICLOVIR [Concomitant]
     Active Substance: ACYCLOVIR
     Indication: LOCALISED INFECTION
     Dosage: UNK
     Dates: start: 20170831

REACTIONS (1)
  - Drug screen false positive [Not Recovered/Not Resolved]
